FAERS Safety Report 8009230-3 (Version None)
Quarter: 2011Q4

REPORT INFORMATION
  Report Type: 
  Country: None (occurrence: None)
  Receive Date: 20111227
  Receipt Date: 20111215
  Transmission Date: 20120403
  Serious: Yes (Other)
  Sender: FDA-Public Use
  Company Number: US-PFIZER INC-2011298705

PATIENT
  Sex: Female
  Weight: 70 kg

DRUGS (6)
  1. DILANTIN [Suspect]
     Dosage: UNK
  2. WARFARIN [Concomitant]
     Dosage: UNK
  3. ALENDRONIC ACID [Suspect]
     Indication: SPINAL COLUMN INJURY
     Dosage: 20 MG (70 MG,2 IN 1 WK)
     Route: 048
     Dates: start: 20111004
  4. ALENDRONIC ACID [Suspect]
     Indication: OSTEOPOROSIS
     Dosage: 20 MG (70 MG,2 IN 1 WK)
     Route: 048
     Dates: start: 20110927
  5. ALENDRONIC ACID [Suspect]
     Dosage: 70 MG, WEEKLY
     Route: 048
     Dates: start: 20111013
  6. PHENOBARBITAL [Concomitant]
     Dosage: UNK

REACTIONS (5)
  - DIZZINESS [None]
  - FEELING ABNORMAL [None]
  - OVERDOSE [None]
  - INCORRECT DOSE ADMINISTERED [None]
  - SOMNOLENCE [None]
